FAERS Safety Report 5418164-X (Version None)
Quarter: 2007Q3

REPORT INFORMATION
  Report Type: 
  Country: None (occurrence: None)
  Receive Date: 20070817
  Receipt Date: 20070807
  Transmission Date: 20080115
  Serious: Yes (Hospitalization, Other)
  Sender: FDA-Public Use
  Company Number: US-ELI_LILLY_AND_COMPANY-US200708001406

PATIENT
  Age: 38 Year
  Sex: Male

DRUGS (4)
  1. HUMULIN N [Suspect]
     Dosage: UNK, UNK
     Route: 058
     Dates: end: 20041201
  2. HUMULIN N [Suspect]
  3. HUMULIN R [Suspect]
     Dosage: UNK, UNK
     Route: 058
     Dates: end: 20041201
  4. HUMULIN R [Suspect]

REACTIONS (9)
  - APPENDICECTOMY [None]
  - BLOOD GLUCOSE DECREASED [None]
  - COLONIC POLYP [None]
  - DIARRHOEA [None]
  - FRACTURE [None]
  - HAEMOCHROMATOSIS [None]
  - HYPOGLYCAEMIC SEIZURE [None]
  - NEPHROLITHIASIS [None]
  - WEIGHT DECREASED [None]
